FAERS Safety Report 7694512-5 (Version None)
Quarter: 2011Q3

REPORT INFORMATION
  Report Type: 
  Country: None (occurrence: None)
  Receive Date: 20110819
  Receipt Date: 20110818
  Transmission Date: 20111222
  Serious: Yes (Death, Hospitalization)
  Sender: FDA-Public Use
  Company Number: PHHO2010DE12411

PATIENT
  Sex: Female
  Weight: 58 kg

DRUGS (1)
  1. AFINITOR [Suspect]
     Indication: METASTATIC RENAL CELL CARCINOMA
     Dosage: 10 MG / DAY
     Route: 048
     Dates: start: 20100806, end: 20100818

REACTIONS (5)
  - HYPONATRAEMIA [None]
  - DYSPNOEA [None]
  - NEOPLASM PROGRESSION [None]
  - PLEURAL EFFUSION [None]
  - NEOPLASM MALIGNANT [None]
